FAERS Safety Report 10657882 (Version 1)
Quarter: 2014Q4

REPORT INFORMATION
  Report Type: Spontaneous
  Country: US (occurrence: None)
  Receive Date: 20141215
  Receipt Date: 20141215
  Transmission Date: 20150529
  Serious: Yes (Other)
  Sender: FDA-Public Use
  Company Number: NXG-14-013

PATIENT
  Sex: Female

DRUGS (1)
  1. POLYETHYLENE GLYCOL [Suspect]
     Active Substance: POLYETHYLENE GLYCOLS
     Indication: PRODUCT USED FOR UNKNOWN INDICATION
     Dates: start: 201410, end: 201410

REACTIONS (3)
  - Drug ineffective [None]
  - Product formulation issue [None]
  - Product solubility abnormal [None]
